FAERS Safety Report 7776620-3 (Version None)
Quarter: 2011Q3

REPORT INFORMATION
  Report Type: 
  Country: None (occurrence: None)
  Receive Date: 20110926
  Receipt Date: 20110920
  Transmission Date: 20111222
  Serious: Yes (Death, Other)
  Sender: FDA-Public Use
  Company Number: US-AMGEN-USASP2011048707

PATIENT
  Sex: Female

DRUGS (1)
  1. NPLATE [Suspect]
     Indication: IDIOPATHIC THROMBOCYTOPENIC PURPURA
     Dates: start: 20101124, end: 20101201

REACTIONS (4)
  - DRUG INEFFECTIVE [None]
  - IDIOPATHIC THROMBOCYTOPENIC PURPURA [None]
  - PNEUMONIA [None]
  - CARDIAC FAILURE CONGESTIVE [None]
